FAERS Safety Report 11635472 (Version 2)
Quarter: 2015Q4

REPORT INFORMATION
  Report Type: Spontaneous
  Country: IT (occurrence: IT)
  Receive Date: 20151016
  Receipt Date: 20151020
  Transmission Date: 20160304
  Serious: Yes (Other)
  Sender: FDA-Public Use
  Company Number: IT-ROCHE-1646258

PATIENT
  Age: 30 Year
  Sex: Female

DRUGS (13)
  1. DIDROGYL [Concomitant]
     Dosage: 1.5 MG / 10 ML ORAL DROPS, SOLUTION 10 ML BOTTLE
     Route: 048
  2. DELTACORTENE [Concomitant]
     Active Substance: PREDNISONE
     Dosage: 5 MG TABLETS 20 TABLETS
     Route: 048
  3. ZYLORIC [Concomitant]
     Active Substance: ALLOPURINOL
     Dosage: 300 MG TABLETS 30 SCORED TABLETS
     Route: 048
  4. SODIUM BICARBONATE. [Concomitant]
     Active Substance: SODIUM BICARBONATE
     Dosage: 500 MG TABLETS 1000 TABLETS
     Route: 048
  5. CELLCEPT [Suspect]
     Active Substance: MYCOPHENOLATE MOFETIL\MYCOPHENOLATE MOFETIL HYDROCHLORIDE
     Indication: PRODUCT USED FOR UNKNOWN INDICATION
     Dosage: 50 TABLETS 500MG
     Route: 048
  6. PLAQUENIL [Concomitant]
     Active Substance: HYDROXYCHLOROQUINE SULFATE
     Dosage: 200 MG COATED TABLETS 25 TABLETS
     Route: 048
  7. TENORMIN [Concomitant]
     Active Substance: ATENOLOL
     Dosage: 100 MG TABLETS 42 TABLETS
     Route: 048
  8. LASIX [Concomitant]
     Active Substance: FUROSEMIDE
     Dosage: 25 MG TABLETS 30 TABLETS
     Route: 048
  9. CARDIOASPIRIN [Concomitant]
     Active Substance: ASPIRIN
     Dosage: 100 MG GASTRO-RESISTANT TABLETS
     Route: 048
  10. CATAPRESAN [Concomitant]
     Active Substance: CLONIDINE
     Dosage: TTS - 2 X 5 MG TRANSDERMAL PATCHES
     Route: 062
  11. ADALAT [Concomitant]
     Active Substance: NIFEDIPINE
     Dosage: 20 MG MODIFIED RELEASE COATED TABLETS
     Route: 048
  12. TORVAST [Concomitant]
     Active Substance: ATORVASTATIN
     Dosage: 20X10 TABLETS 20 MG
     Route: 048
  13. MEPRAL [Concomitant]
     Active Substance: OMEPRAZOLE SODIUM
     Dosage: 20 MG GASTRO-RESISTANT HARD CAPSULES
     Route: 048

REACTIONS (2)
  - Oropharyngeal pain [Unknown]
  - Hyperpyrexia [Unknown]

NARRATIVE: CASE EVENT DATE: 20150825
